FAERS Safety Report 18289385 (Version 1)
Quarter: 2020Q3

REPORT INFORMATION
  Report Type: Spontaneous
  Country: US (occurrence: US)
  Receive Date: 20200921
  Receipt Date: 20200921
  Transmission Date: 20201103
  Serious: Yes (Disabling)
  Sender: FDA-Public Use
  Company Number: None

PATIENT
  Age: 39 Year
  Sex: Female
  Weight: 60.75 kg

DRUGS (6)
  1. LACTAID [Concomitant]
     Active Substance: LACTASE
  2. DICLOFENAC [Concomitant]
     Active Substance: DICLOFENAC
  3. NATURE?THROID [Suspect]
     Active Substance: THYROID, PORCINE
     Indication: HYPOTHYROIDISM
     Dosage: ?          QUANTITY:1 TABLET(S);?
     Route: 048
     Dates: start: 20200613, end: 20200919
  4. ICD [Concomitant]
  5. TIZANADINE [Concomitant]
     Active Substance: TIZANIDINE
  6. PROBIOTIC [Concomitant]
     Active Substance: PROBIOTICS NOS

REACTIONS (6)
  - Lethargy [None]
  - Constipation [None]
  - Dizziness [None]
  - Palpitations [None]
  - Feeling cold [None]
  - Recalled product administered [None]

NARRATIVE: CASE EVENT DATE: 20200907
